FAERS Safety Report 8030129-0 (Version None)
Quarter: 2012Q1

REPORT INFORMATION
  Report Type: 
  Country: None (occurrence: None)
  Receive Date: 20120109
  Receipt Date: 20120105
  Transmission Date: 20120608
  Serious: No
  Sender: FDA-Public Use
  Company Number: US-B.I. PHARMACEUTICALS,INC./RIDGEFIELD-2011-BP-25524BP

PATIENT
  Sex: Female

DRUGS (10)
  1. ZOCOR [Concomitant]
     Indication: BLOOD CHOLESTEROL INCREASED
     Dosage: 2.5 MG
     Route: 048
     Dates: start: 20100601
  2. METFORMIN HCL [Concomitant]
     Indication: DIABETES MELLITUS
     Dosage: 500 MG
     Route: 048
     Dates: start: 20020101
  3. METFORMIN HCL [Concomitant]
     Indication: GLUCOSE TOLERANCE IMPAIRED
  4. NORVASC [Concomitant]
     Indication: HYPERTENSION
     Route: 048
     Dates: start: 20040101
  5. XANAX [Concomitant]
     Indication: ANXIETY
     Route: 048
  6. PRADAXA [Suspect]
     Indication: ATRIAL FIBRILLATION
     Dosage: 300 MG
     Route: 048
     Dates: start: 20111019
  7. ACETAMINOPHEN [Concomitant]
     Indication: ARTHRITIS
     Route: 048
  8. MULTI-VITAMINS [Concomitant]
     Indication: SUPPLEMENTATION THERAPY
     Route: 048
  9. LISINOPRILL/HCTZ 20/12.5 [Concomitant]
     Indication: ATRIAL FIBRILLATION
     Route: 048
     Dates: start: 20020101
  10. LISINOPRILL/HCTZ 20/12.5 [Concomitant]
     Indication: HYPERTENSION

REACTIONS (4)
  - MUSCULOSKELETAL STIFFNESS [None]
  - ABDOMINAL PAIN UPPER [None]
  - FLATULENCE [None]
  - MUSCLE SPASMS [None]
